FAERS Safety Report 12686340 (Version 2)
Quarter: 2016Q3

REPORT INFORMATION
  Report Type: Spontaneous
  Country: US (occurrence: US)
  Receive Date: 20160825
  Receipt Date: 20160912
  Transmission Date: 20161109
  Serious: No
  Sender: FDA-Public Use
  Company Number: US-JAZZ-2016-US-006933

PATIENT
  Sex: Female

DRUGS (22)
  1. MULTIVITAMINS [Concomitant]
     Active Substance: VITAMINS
  2. XYREM [Suspect]
     Active Substance: SODIUM OXYBATE
     Dosage: 3 G, BID
     Route: 048
     Dates: start: 201603, end: 2016
  3. CYCLOBENZAPRINE [Concomitant]
     Active Substance: CYCLOBENZAPRINE
  4. NUVIGIL [Concomitant]
     Active Substance: ARMODAFINIL
  5. PROBIOTIC [Concomitant]
     Active Substance: PROBIOTICS NOS
  6. COENZYME Q10 [Concomitant]
     Active Substance: UBIDECARENONE
  7. IPRATROPIUM [Concomitant]
     Active Substance: IPRATROPIUM
  8. TRIAMTERENE AND HYDROCHLOROTHIAZIDE [Concomitant]
     Active Substance: HYDROCHLOROTHIAZIDE\TRIAMTERENE
  9. AMBIEN [Concomitant]
     Active Substance: ZOLPIDEM TARTRATE
  10. EPIPEN [Concomitant]
     Active Substance: EPINEPHRINE
  11. KETOROLAC TROMETHAMINE. [Concomitant]
     Active Substance: KETOROLAC TROMETHAMINE
  12. NASONEX [Concomitant]
     Active Substance: MOMETASONE FUROATE
  13. SULFASALAZINE. [Concomitant]
     Active Substance: SULFASALAZINE
  14. XYREM [Suspect]
     Active Substance: SODIUM OXYBATE
     Indication: NARCOLEPSY
     Dosage: 2.25 G, BID
     Route: 048
     Dates: start: 201603, end: 201603
  15. BENADRYL [Concomitant]
     Active Substance: DIPHENHYDRAMINE HYDROCHLORIDE
  16. GABAPENTIN. [Concomitant]
     Active Substance: GABAPENTIN
  17. MUCINEX [Concomitant]
     Active Substance: GUAIFENESIN
  18. VITAMIN D3 [Concomitant]
     Active Substance: CHOLECALCIFEROL
  19. XANAX [Concomitant]
     Active Substance: ALPRAZOLAM
  20. FLAXSEED [Concomitant]
     Active Substance: FLAX SEED
  21. MELOXICAM. [Concomitant]
     Active Substance: MELOXICAM
  22. PRAVASTATIN SODIUM. [Concomitant]
     Active Substance: PRAVASTATIN SODIUM

REACTIONS (2)
  - Anxiety [Unknown]
  - Insomnia [Unknown]
